FAERS Safety Report 21205834 (Version 3)
Quarter: 2022Q4

REPORT INFORMATION
  Report Type: Spontaneous
  Country: DE (occurrence: DE)
  Receive Date: 20220812
  Receipt Date: 20221225
  Transmission Date: 20230112
  Serious: Yes (Hospitalization, Other)
  Sender: FDA-Public Use
  Company Number: DE-NOVPHSZ-PHHY2019DE005383

PATIENT
  Sex: Female
  Weight: 78 kg

DRUGS (53)
  1. MOXIFLOXACIN [Suspect]
     Active Substance: MOXIFLOXACIN
     Indication: Infection
     Dosage: 400 MILLIGRAM
     Route: 065
     Dates: start: 201508, end: 201508
  2. VALSARTAN [Suspect]
     Active Substance: VALSARTAN
     Indication: Essential hypertension
     Dosage: 1 DOSAGE FORM (1 DF (80 MG, PER DAY IN THE MORNING)
     Route: 065
     Dates: start: 20140926, end: 201806
  3. VALSARTAN [Suspect]
     Active Substance: VALSARTAN
     Dosage: 80 MILLIGRAM, ONCE A DAY
     Route: 065
     Dates: start: 201412, end: 20180707
  4. VALSARTAN [Suspect]
     Active Substance: VALSARTAN
     Dosage: 80 MILLIGRAM, ONCE A DAY
     Route: 065
     Dates: start: 201510, end: 201807
  5. VALSARTAN [Suspect]
     Active Substance: VALSARTAN
     Dosage: 80 MILLIGRAM, ONCE A DAY (1 TABLET PER DAY) (MORNING)
     Route: 065
     Dates: start: 201601, end: 201807
  6. VALSARTAN [Suspect]
     Active Substance: VALSARTAN
     Dosage: 80 MILLIGRAM
     Route: 065
     Dates: start: 20180412, end: 201807
  7. ATROVENT [Concomitant]
     Active Substance: IPRATROPIUM BROMIDE
     Indication: Pneumonia
     Dosage: UNK
     Route: 065
  8. BUTYLSCOPOLAMINE BROMIDE [Concomitant]
     Active Substance: BUTYLSCOPOLAMINE BROMIDE
     Indication: Product used for unknown indication
     Dosage: 1 DOSAGE FORM
     Route: 065
  9. BECLOMETHASONE DIPROPIONATE [Concomitant]
     Active Substance: BECLOMETHASONE DIPROPIONATE
     Indication: Asthma
     Dosage: UNK
     Route: 065
  10. HYDROCHLOROTHIAZIDE\VALSARTAN [Concomitant]
     Active Substance: HYDROCHLOROTHIAZIDE\VALSARTAN
     Indication: Product used for unknown indication
     Dosage: UNK
     Route: 065
  11. PIRITRAMIDE [Concomitant]
     Active Substance: PIRITRAMIDE
     Indication: Product used for unknown indication
     Dosage: UNK
     Route: 065
     Dates: start: 201805
  12. DIOVAN [Concomitant]
     Active Substance: VALSARTAN
     Indication: Product used for unknown indication
     Dosage: 160 MILLIGRAM, ONCE A DAY (80 MG, BID)
     Route: 065
  13. DIOVAN [Concomitant]
     Active Substance: VALSARTAN
     Dosage: 80 MILLIGRAM, ONCE A DAY (80 MG, QD)
     Route: 065
  14. DIOVAN [Concomitant]
     Active Substance: VALSARTAN
     Dosage: 80 MILLIGRAM (ONCE DAILY IN THE MORNING (1-0-0-0)
     Route: 065
     Dates: start: 20180502
  15. DORZOVISION [Concomitant]
     Indication: Product used for unknown indication
     Dosage: ONCE A DAY
     Route: 065
  16. CHOLECALCIFEROL [Concomitant]
     Active Substance: CHOLECALCIFEROL
     Indication: Product used for unknown indication
     Dosage: 20 INTERNATIONAL UNIT (20 IU, PER WEEK)
     Route: 065
  17. CHOLECALCIFEROL [Concomitant]
     Active Substance: CHOLECALCIFEROL
     Dosage: 20 INTERNATIONAL UNIT, ONCE A DAY (20 IU, ONCE DAILY IN THE MORNING)
     Route: 065
     Dates: start: 20180502
  18. CHOLECALCIFEROL [Concomitant]
     Active Substance: CHOLECALCIFEROL
     Dosage: 20 INTERNATIONAL UNIT, ONCE A DAY (20 IU, ONCE DAILY IN THE MORNING)
     Route: 065
     Dates: start: 20180523
  19. CHOLECALCIFEROL [Concomitant]
     Active Substance: CHOLECALCIFEROL
     Dosage: 20 INTERNATIONAL UNIT, ONCE A DAY (20.000 IU, Q2W)
     Route: 065
     Dates: start: 20200628
  20. FUROSEMIDE [Concomitant]
     Active Substance: FUROSEMIDE
     Indication: Product used for unknown indication
     Dosage: UNK
     Route: 065
  21. FONDAPARINUX [Concomitant]
     Active Substance: FONDAPARINUX
     Indication: Thrombosis prophylaxis
     Dosage: 2.5 MILLIGRAM (2.5 MG, IN THE EVENING, EVERY DAY)
     Route: 065
  22. FORMOTEROL [Concomitant]
     Active Substance: FORMOTEROL
     Indication: Asthma
     Dosage: UNK
     Route: 065
  23. HUMATIN [Concomitant]
     Active Substance: PAROMOMYCIN SULFATE
     Indication: Product used for unknown indication
     Dosage: 8 GRAM (8 G, DISSOLVED IN THE GLASS OF WATER, ONCE IN THE EVENING (9 PM)
     Route: 065
     Dates: start: 20180524
  24. Hepathrombin [Concomitant]
     Indication: Product used for unknown indication
     Dosage: UNK
     Route: 065
  25. IODINE [Concomitant]
     Active Substance: IODINE
     Indication: Thyroid therapy
     Dosage: 200 MICROGRAM
     Route: 065
  26. IODINE [Concomitant]
     Active Substance: IODINE
     Dosage: 200 MICROGRAM, ONCE A DAY (200 UG, HALF A TABLET 200 ?G)
  27. IODINE [Concomitant]
     Active Substance: IODINE
     Dosage: 200 MICROGRAM, ONCE A DAY (200 UG, QD, 1X, PER DAY (MORNING, 1-0-0-0)
     Dates: start: 20180502
  28. IODINE [Concomitant]
     Active Substance: IODINE
     Dosage: 200 MICROGRAM, ONCE A DAY (200 UG, QD, 1X, PER DAY (MORNING, 1-0-0-0, 8 AM)
     Route: 065
     Dates: start: 20180523, end: 20180524
  29. IODINE [Concomitant]
     Active Substance: IODINE
     Indication: Product used for unknown indication
     Dosage: 0.2 MILLIGRAM, ONCE A DAY ( (200 HEXAL) IN THE MORNING)
     Route: 065
  30. GRANISETRON HYDROCHLORIDE [Concomitant]
     Active Substance: GRANISETRON HYDROCHLORIDE
     Indication: Product used for unknown indication
     Dosage: 1 MILLIGRAM (1 MG, 1 ML,)
     Route: 065
     Dates: start: 20180528
  31. LIDOCAINE [Concomitant]
     Active Substance: LIDOCAINE
     Indication: Analgesic therapy
     Dosage: ACCORDING TO SCHEME
     Route: 065
  32. MAGNESIUM CARBONATE;POTASSIUM [Concomitant]
     Indication: Product used for unknown indication
     Dosage: (1 PER DAY, MORMING)
     Route: 065
  33. MAGNESIUM [Concomitant]
     Active Substance: MAGNESIUM
     Indication: Product used for unknown indication
     Dosage: 1 DOSAGE FORM, ONCE A DAY (1 DF, QD)
     Route: 065
  34. LATANOPROST [Concomitant]
     Active Substance: LATANOPROST
     Indication: Glaucoma
     Dosage: ONCE A DAY ((0.01 MG/0.2 ML) IN THE EVENING, EVERY EYE
     Route: 065
  35. LATANOPROST [Concomitant]
     Active Substance: LATANOPROST
     Dosage: 1 GTT DROPS (1 DRP, IN THE MORNINGS, LEFT AND REIGHT)
     Route: 065
  36. LATANOPROST [Concomitant]
     Active Substance: LATANOPROST
     Dosage: 1 GTT DROPS (1 DRP, 1X 1 DROP, IN THE EVENINGS, PER EYE)
     Route: 065
  37. LATANOPROST [Concomitant]
     Active Substance: LATANOPROST
     Dosage: 50 MICROGRAM/MILLILITER (50 UG/ML, ONE DROP IN EVERY EYE IN THE EVENING (0-0-1))
     Route: 065
  38. METAMIZOLE [Concomitant]
     Active Substance: METAMIZOLE
     Indication: Analgesic therapy
     Dosage: 1 MILLIGRAM
     Route: 065
  39. PANTOZOL [Concomitant]
     Active Substance: PANTOPRAZOLE SODIUM
     Indication: Product used for unknown indication
     Dosage: 20 MILLIGRAM, ONCE A DAY (20 MG, QD, 1X DAILY (MORNING)
     Route: 065
  40. ACETAMINOPHEN [Concomitant]
     Active Substance: ACETAMINOPHEN
     Indication: Product used for unknown indication
     Dosage: 500 MILLIGRAM (500 MG, AS NEEDED)
     Route: 065
     Dates: start: 20180602
  41. HYDROMORPHONE [Concomitant]
     Active Substance: HYDROMORPHONE
     Indication: Product used for unknown indication
     Dosage: 2.6 MILLIGRAM, ONCE A DAY (1.3 MG, BID)
     Route: 065
  42. HYDROMORPHONE [Concomitant]
     Active Substance: HYDROMORPHONE
     Dosage: 1.3 MILLIGRAM
     Route: 065
     Dates: start: 20180526
  43. PANTOPRAZOLE SODIUM [Concomitant]
     Active Substance: PANTOPRAZOLE SODIUM
     Indication: Product used for unknown indication
     Dosage: 20 MILLIGRAM, ONCE A DAY (20 MG, QD (1 DAILY, MORNING)
     Route: 065
  44. PANTOPRAZOLE SODIUM [Concomitant]
     Active Substance: PANTOPRAZOLE SODIUM
     Dosage: 40 MILLIGRAM, ONCE A DAY (40 MG BUNK)
     Route: 065
  45. PANTOPRAZOLE SODIUM [Concomitant]
     Active Substance: PANTOPRAZOLE SODIUM
     Dosage: 80 MILLIGRAM, ONCE A DAY (40 MG, BID)
     Route: 065
  46. POTASSIUM IODIDE [Concomitant]
     Active Substance: POTASSIUM IODIDE
     Indication: Thyroid therapy
     Dosage: 200 MICROGRAM (200 UG, ? IN THE MORNING (1/2-0-0-0)
     Route: 065
     Dates: start: 20180524
  47. Riopan [Concomitant]
     Indication: Product used for unknown indication
     Dosage: AS NEEDED
     Route: 065
  48. CALCIUM CHLORIDE\POTASSIUM CHLORIDE\SODIUM ACETATE [Concomitant]
     Active Substance: CALCIUM CHLORIDE\POTASSIUM CHLORIDE\SODIUM ACETATE
     Indication: Product used for unknown indication
     Dosage: 1000 MILLILITER
     Route: 065
     Dates: start: 20180525, end: 20180531
  49. SODIUM CHLORIDE [Concomitant]
     Active Substance: SODIUM CHLORIDE
     Indication: Product used for unknown indication
     Dosage: UNK
     Route: 065
     Dates: start: 201805
  50. SULTANOL [Concomitant]
     Active Substance: ALBUTEROL SULFATE
     Indication: Pneumonia
     Dosage: UNK
     Route: 065
  51. NALOXONE HYDROCHLORIDE\OXYCODONE HYDROCHLORIDE [Concomitant]
     Active Substance: NALOXONE HYDROCHLORIDE\OXYCODONE HYDROCHLORIDE
     Indication: Product used for unknown indication
     Dosage: 10 MILLIGRAM (10 MG / 10/5 MG, ONCE IN THE MORNING, ONCE IN THE EVENING (8 AM, 5/8 PM)
     Route: 065
     Dates: start: 20180526, end: 20180528
  52. VOLTAREN [Concomitant]
     Active Substance: DICLOFENAC SODIUM
     Indication: Product used for unknown indication
     Dosage: UNK
     Route: 065
  53. XANAFLU [Concomitant]
     Active Substance: INFLUENZA VIRUS VACCINE
     Indication: Influenza immunisation
     Dosage: UNK
     Route: 065
     Dates: start: 20171114

REACTIONS (108)
  - Diarrhoea [Unknown]
  - Jaundice cholestatic [Recovered/Resolved]
  - Colon neoplasm [Unknown]
  - Nephritis [Unknown]
  - Change of bowel habit [Unknown]
  - Mucosal haemorrhage [Unknown]
  - Obstructive pancreatitis [Recovered/Resolved]
  - Adenocarcinoma [Recovered/Resolved]
  - Vomiting [Unknown]
  - Abdominal pain upper [Unknown]
  - General physical health deterioration [Unknown]
  - Chromaturia [Unknown]
  - Foot deformity [Unknown]
  - Macular degeneration [Unknown]
  - Nausea [Unknown]
  - Exostosis [Recovering/Resolving]
  - Dehydration [Unknown]
  - Faeces discoloured [Unknown]
  - Colon cancer [Recovered/Resolved]
  - Nasopharyngitis [Unknown]
  - Asthenia [Unknown]
  - Large intestine polyp [Recovered/Resolved]
  - Gastritis erosive [Unknown]
  - Appendicitis [Unknown]
  - Respiratory tract infection [Unknown]
  - Sinus node dysfunction [Unknown]
  - Myocardial ischaemia [Unknown]
  - Gastric mucosa erythema [Unknown]
  - Joint destruction [Unknown]
  - Osteoarthritis [Unknown]
  - Arrhythmia [Unknown]
  - Pericarditis [Unknown]
  - Pyelonephritis [Recovering/Resolving]
  - Renal atrophy [Unknown]
  - Angioedema [Unknown]
  - Cauda equina syndrome [Unknown]
  - Cardiac failure [Unknown]
  - Hypercholesterolaemia [Unknown]
  - Weight decreased [Unknown]
  - Dysplasia [Unknown]
  - Eye pain [Unknown]
  - Peripheral swelling [Unknown]
  - Goitre [Unknown]
  - Blood creatinine increased [Unknown]
  - Allergy to metals [Unknown]
  - Sciatica [Unknown]
  - Haemorrhoidal haemorrhage [Unknown]
  - Immobilisation syndrome [Unknown]
  - Dyschezia [Recovering/Resolving]
  - Swelling face [Unknown]
  - Dysphagia [Unknown]
  - Food intolerance [Unknown]
  - Hyposmia [Unknown]
  - Arthralgia [Unknown]
  - Chest discomfort [Unknown]
  - Haemorrhoids [Unknown]
  - Abdominal pain [Unknown]
  - Dyspepsia [Unknown]
  - Dyspnoea exertional [Unknown]
  - Lymphadenitis [Unknown]
  - Night sweats [Unknown]
  - Anal haemorrhage [Unknown]
  - Adverse drug reaction [Unknown]
  - Joint effusion [Unknown]
  - Fall [Unknown]
  - Rash [Unknown]
  - Flatulence [Unknown]
  - Pain [Unknown]
  - Muscle atrophy [Unknown]
  - Hyperuricaemia [Unknown]
  - Visual impairment [Unknown]
  - Microangiopathy [Unknown]
  - Abdominal pain lower [Unknown]
  - Vulvovaginal inflammation [Unknown]
  - Spinal osteoarthritis [Unknown]
  - Sinusitis [Recovering/Resolving]
  - Tinnitus [Unknown]
  - Tendonitis [Unknown]
  - Thyroid disorder [Unknown]
  - Renal cyst [Unknown]
  - Spinal disorder [Unknown]
  - Iron deficiency anaemia [Unknown]
  - Anaemia [Unknown]
  - Diverticulum intestinal [Unknown]
  - Oedema [Unknown]
  - Cardiomegaly [Unknown]
  - Mobility decreased [Unknown]
  - Lymphoedema [Unknown]
  - Vaginal infection [Unknown]
  - Bowel movement irregularity [Unknown]
  - Hyperkinesia [Unknown]
  - Leukocytosis [Unknown]
  - Fluid retention [Unknown]
  - Colorectal adenoma [Unknown]
  - Raynaud^s phenomenon [Unknown]
  - Hiatus hernia [Unknown]
  - Anal skin tags [Unknown]
  - Thoracic outlet syndrome [Unknown]
  - Oropharyngeal pain [Unknown]
  - Oedema peripheral [Unknown]
  - Aortic dilatation [Unknown]
  - Aggression [Unknown]
  - Enthesopathy [Unknown]
  - Plantar fasciitis [Recovering/Resolving]
  - Cough [Unknown]
  - Urinary tract infection [Unknown]
  - Wheezing [Unknown]
  - Gamma-glutamyltransferase increased [Unknown]

NARRATIVE: CASE EVENT DATE: 20150101
